FAERS Safety Report 10732207 (Version 1)
Quarter: 2015Q1

REPORT INFORMATION
  Report Type: Spontaneous
  Country: GR (occurrence: GR)
  Receive Date: 20150123
  Receipt Date: 20150123
  Transmission Date: 20150721
  Serious: Yes (Other)
  Sender: FDA-Public Use
  Company Number: GR-CIPLA LTD.-2015GR00445

PATIENT

DRUGS (3)
  1. CALCIUM AND VITAMIN D SUPPLEMENTATION [Concomitant]
     Indication: OSTEOPOROSIS
  2. ALENDRONATE [Suspect]
     Active Substance: ALENDRONATE SODIUM
     Indication: OSTEOPOROSIS POSTMENOPAUSAL
     Dosage: 70 MG/WEEK
  3. ANGIOTENSIN CONVERTING ENZYME [Concomitant]
     Active Substance: UNSPECIFIED INGREDIENT
     Indication: HYPERTENSION

REACTIONS (1)
  - Femur fracture [Recovered/Resolved]
